FAERS Safety Report 6253396-2 (Version None)
Quarter: 2009Q2

REPORT INFORMATION
  Report Type: 
  Country: None (occurrence: None)
  Receive Date: 20090626
  Receipt Date: 20080627
  Transmission Date: 20091009
  Serious: Yes (Hospitalization)
  Sender: FDA-Public Use
  Company Number: 572847

PATIENT
  Age: 51 Year
  Sex: Female
  Weight: 72.3 kg

DRUGS (3)
  1. XELODA [Suspect]
     Indication: BREAST CANCER METASTATIC
     Dosage: 3.5 GRAM DAILY  2 PER DAY  ORAL
     Route: 048
     Dates: start: 20080218, end: 20080623
  2. AVASTIN [Concomitant]
  3. PERCOCET (OXYCODONE/PARACETAMOL) [Concomitant]

REACTIONS (2)
  - EJECTION FRACTION DECREASED [None]
  - PLEURAL EFFUSION [None]
